FAERS Safety Report 15835988 (Version 1)
Quarter: 2018Q4

REPORT INFORMATION
  Report Type: Spontaneous
  Country: US (occurrence: US)
  Receive Date: 20181221
  Receipt Date: 20181221
  Transmission Date: 20190205
  Serious: No
  Sender: FDA-Public Use
  Company Number: None

PATIENT
  Age: 54 Year
  Sex: Female
  Weight: 96.16 kg

DRUGS (2)
  1. RASUVO [Suspect]
     Active Substance: METHOTREXATE SODIUM
     Indication: OSTEOARTHRITIS
     Dosage: INJECT 15MG (0.3ML) ONCE WEEKLY ON THE SAME DAY EACH WEEK AS DIRECTED
     Route: 058
     Dates: start: 201811
  2. RASUVO [Suspect]
     Active Substance: METHOTREXATE SODIUM
     Indication: SYSTEMIC LUPUS ERYTHEMATOSUS
     Dosage: INJECT 15MG (0.3ML) ONCE WEEKLY ON THE SAME DAY EACH WEEK AS DIRECTED
     Route: 058
     Dates: start: 201811

REACTIONS (1)
  - Stomatitis [None]
